FAERS Safety Report 9437850 (Version 1)
Quarter: 2013Q3

REPORT INFORMATION
  Report Type: Spontaneous
  Country: US (occurrence: US)
  Receive Date: 20130802
  Receipt Date: 20130802
  Transmission Date: 20140515
  Serious: No
  Sender: FDA-Public Use
  Company Number: US-BRISTOL-MYERS SQUIBB COMPANY-18702324

PATIENT
  Age: 53 Year
  Sex: Female

DRUGS (2)
  1. COUMADIN [Suspect]
     Indication: HYPERCOAGULATION
     Dosage: TWO DOSES:6MG TWICE A WEEK ,4MG 5 DAYS A WEEK
     Dates: start: 200811
  2. ARIXTRA [Concomitant]

REACTIONS (1)
  - International normalised ratio fluctuation [Unknown]
